FAERS Safety Report 6709256-3 (Version None)
Quarter: 2010Q2

REPORT INFORMATION
  Report Type: 
  Country: None (occurrence: None)
  Receive Date: 20100504
  Receipt Date: 20100423
  Transmission Date: 20101027
  Serious: Yes (Hospitalization)
  Sender: FDA-Public Use
  Company Number: DE-SANOFI-AVENTIS-A01200902554

PATIENT
  Sex: Male
  Weight: 86 kg

DRUGS (13)
  1. CLOPIDOGREL BISULFATE [Suspect]
     Dosage: UNIT DOSE: 75 MG
     Route: 048
     Dates: start: 20080501
  2. CLOPIDOGREL BISULFATE [Suspect]
     Indication: CORONARY ARTERIAL STENT INSERTION
     Dosage: UNIT DOSE: 75 MG
     Route: 048
     Dates: start: 20080501
  3. CLOPIDOGREL BISULFATE [Suspect]
     Indication: MYOCARDIAL INFARCTION
     Dosage: UNIT DOSE: 75 MG
     Route: 048
     Dates: start: 20080501
  4. ACETYLSALICYLIC ACID [Suspect]
     Indication: MYOCARDIAL INFARCTION
     Route: 065
     Dates: start: 20080501, end: 20080601
  5. SIMVASTATIN [Interacting]
     Route: 048
     Dates: start: 20080501
  6. CLEXANE /GFR/ [Suspect]
     Indication: THROMBOSIS PROPHYLAXIS
     Route: 058
     Dates: start: 20080601
  7. FALITHROM ^HEXAL^ [Interacting]
     Indication: THROMBOSIS PROPHYLAXIS
     Route: 048
     Dates: start: 20080501, end: 20080810
  8. OMEPRAZOLE [Interacting]
     Route: 048
     Dates: start: 20080501, end: 20080810
  9. OMEPRAZOLE [Interacting]
     Route: 048
     Dates: start: 20080801
  10. METOHEXAL [Suspect]
     Route: 048
     Dates: start: 20080601
  11. THIAMAZOLE [Suspect]
     Route: 048
     Dates: start: 20080501
  12. RAMIPRIL [Concomitant]
     Route: 048
     Dates: start: 20080501, end: 20080810
  13. LORZAAR [Concomitant]
     Route: 065
     Dates: start: 20080501

REACTIONS (11)
  - ABDOMINAL PAIN [None]
  - ANAEMIA [None]
  - DIARRHOEA [None]
  - DRUG INTERACTION [None]
  - GASTRIC ULCER HAEMORRHAGE [None]
  - GASTRITIS HAEMORRHAGIC [None]
  - GASTROINTESTINAL HAEMORRHAGE [None]
  - HYPOTENSION [None]
  - INTERNATIONAL NORMALISED RATIO INCREASED [None]
  - NAUSEA [None]
  - VOMITING [None]
